FAERS Safety Report 13075559 (Version 4)
Quarter: 2017Q2

REPORT INFORMATION
  Report Type: Spontaneous
  Country: BR (occurrence: BR)
  Receive Date: 20161230
  Receipt Date: 20170405
  Transmission Date: 20170830
  Serious: Yes (Other)
  Sender: FDA-Public Use
  Company Number: BR-SA-2016SA236582

PATIENT
  Age: 84 Year
  Sex: Female

DRUGS (12)
  1. ZOLOFT [Concomitant]
     Active Substance: SERTRALINE HYDROCHLORIDE
     Route: 065
     Dates: start: 20161127
  2. CLEXANE [Suspect]
     Active Substance: ENOXAPARIN SODIUM
     Indication: PROPHYLAXIS
     Route: 051
     Dates: start: 20161130, end: 20170103
  3. ZOFRAN [Concomitant]
     Active Substance: ONDANSETRON HYDROCHLORIDE
     Indication: ANTIEMETIC SUPPORTIVE CARE
     Route: 065
     Dates: start: 20161127
  4. ALDACTONE [Concomitant]
     Active Substance: SPIRONOLACTONE
     Route: 065
     Dates: start: 20161205
  5. CLEXANE [Suspect]
     Active Substance: ENOXAPARIN SODIUM
     Indication: PROPHYLAXIS
     Route: 051
     Dates: start: 20161130, end: 20170103
  6. PANTOCAL [Concomitant]
     Indication: PROPHYLAXIS
     Route: 065
     Dates: start: 20161127
  7. MIOSAN [Concomitant]
     Active Substance: CYCLOBENZAPRINE
     Route: 065
     Dates: start: 20161127
  8. LACTULONA [Concomitant]
     Indication: CONSTIPATION
     Route: 065
     Dates: start: 20161202
  9. CLEXANE [Suspect]
     Active Substance: ENOXAPARIN SODIUM
     Indication: PROPHYLAXIS
     Route: 051
     Dates: start: 20161130, end: 20170103
  10. STILNOX [Suspect]
     Active Substance: ZOLPIDEM TARTRATE
     Route: 065
  11. TAZOCIN [Concomitant]
     Active Substance: PIPERACILLIN SODIUM\TAZOBACTAM SODIUM
     Indication: CHOLANGITIS
     Route: 065
     Dates: start: 20161127
  12. NOVALGINA [Suspect]
     Active Substance: METAMIZOLE SODIUM
     Indication: ANALGESIC THERAPY
     Route: 065

REACTIONS (2)
  - Ecchymosis [Recovered/Resolved]
  - Intra-abdominal haematoma [Recovered/Resolved]

NARRATIVE: CASE EVENT DATE: 20161205
